FAERS Safety Report 5068139-8 (Version None)
Quarter: 2006Q3

REPORT INFORMATION
  Report Type: 
  Country: None (occurrence: None)
  Receive Date: 20060802
  Receipt Date: 20060413
  Transmission Date: 20061208
  Serious: Yes (Death)
  Sender: FDA-Public Use
  Company Number: JP-BRISTOL-MYERS SQUIBB COMPANY-13346747

PATIENT
  Age: 71 Year
  Sex: Female

DRUGS (4)
  1. PARAPLATIN [Suspect]
     Indication: OVARIAN CANCER
     Route: 042
     Dates: start: 20060410, end: 20060410
  2. DOCETAXEL [Concomitant]
     Route: 042
     Dates: start: 20060410, end: 20060410
  3. GRANISETRON HCL [Concomitant]
     Route: 042
     Dates: start: 20060410, end: 20060410
  4. DEXAMETHASONE SODIUM PHOSPHATE [Concomitant]
     Route: 042
     Dates: start: 20060410, end: 20060410

REACTIONS (2)
  - ANAPHYLACTIC SHOCK [None]
  - CARDIAC ARREST [None]
